FAERS Safety Report 23737682 (Version 4)
Quarter: 2025Q2

REPORT INFORMATION
  Report Type: Report from Study
  Country: TH (occurrence: TH)
  Receive Date: 20240412
  Receipt Date: 20250408
  Transmission Date: 20250717
  Serious: Yes (Other)
  Sender: IPSEN
  Company Number: TH-IPSEN Group, Research and Development-2024-04749

PATIENT
  Age: 65 Year
  Sex: Female

DRUGS (2)
  1. LANREOTIDE ACETATE [Suspect]
     Active Substance: LANREOTIDE ACETATE
     Indication: Gastroenteropancreatic neuroendocrine tumour disease
     Route: 058
     Dates: start: 20231016
  2. LANREOTIDE ACETATE [Suspect]
     Active Substance: LANREOTIDE ACETATE
     Dosage: VIA DEEP SUBCUTANEOUS ROUTE
     Route: 058
     Dates: start: 20250402

REACTIONS (3)
  - Malignant neoplasm progression [Unknown]
  - Diabetes mellitus inadequate control [Unknown]
  - Therapy interrupted [Unknown]

NARRATIVE: CASE EVENT DATE: 20240215
